FAERS Safety Report 8722408 (Version 2)
Quarter: 2013Q4

REPORT INFORMATION
  Report Type: Report from Study
  Country: US (occurrence: US)
  Receive Date: 20120814
  Receipt Date: 20131101
  Transmission Date: 20140711
  Serious: Yes (Hospitalization, Other)
  Sender: FDA-Public Use
  Company Number: US-009507513-1208USA001664

PATIENT
  Sex: 0

DRUGS (2)
  1. REMERON [Suspect]
     Indication: ANTIDEPRESSANT THERAPY
  2. OLANZAPINE [Interacting]
     Indication: ANTIDEPRESSANT THERAPY

REACTIONS (2)
  - Serotonin syndrome [Unknown]
  - Drug interaction [Unknown]
